FAERS Safety Report 23333852 (Version 1)
Quarter: 2023Q4

REPORT INFORMATION
  Report Type: Spontaneous
  Country: AU (occurrence: AU)
  Receive Date: 20231223
  Receipt Date: 20231223
  Transmission Date: 20240110
  Serious: Yes (Hospitalization, Other)
  Sender: FDA-Public Use
  Company Number: AU-BAYER-2023A183218

PATIENT
  Age: 74 Year
  Sex: Male

DRUGS (31)
  1. XARELTO [Suspect]
     Active Substance: RIVAROXABAN
     Indication: Atrial fibrillation
     Dosage: 15 MG, QD
     Route: 048
  2. XARELTO [Suspect]
     Active Substance: RIVAROXABAN
     Dosage: 20 MG, QD
     Route: 048
     Dates: start: 2013, end: 20231125
  3. AMITRIPTYLINE [Concomitant]
     Active Substance: AMITRIPTYLINE
     Indication: Neuropathy peripheral
     Dosage: 25 MG, QD
     Route: 048
     Dates: start: 20210513
  4. PANADOL [Concomitant]
     Active Substance: ACETAMINOPHEN
     Indication: Neuropathy peripheral
     Dosage: 625 MG, TID
     Route: 048
     Dates: start: 20210513
  5. PANADOL [Concomitant]
     Active Substance: ACETAMINOPHEN
     Indication: Gout
  6. PREGABALIN [Concomitant]
     Active Substance: PREGABALIN
     Indication: Neuropathy peripheral
     Dosage: 75 MG, QD
     Route: 048
     Dates: start: 20210813
  7. PREDNISOLONE [Concomitant]
     Active Substance: PREDNISOLONE
     Indication: Peripheral swelling
     Dosage: UNK UNK, QD
     Route: 048
     Dates: start: 20211111
  8. PREDNISOLONE [Concomitant]
     Active Substance: PREDNISOLONE
     Indication: Gout
  9. FUROSEMIDE [Concomitant]
     Active Substance: FUROSEMIDE
     Indication: Peripheral swelling
     Dosage: UNK UNK, PRN
     Route: 048
     Dates: start: 20211025
  10. FUROSEMIDE [Concomitant]
     Active Substance: FUROSEMIDE
     Indication: Cardiac failure congestive
     Dosage: 80 MG, BID
  11. VITAMIN B1 [Concomitant]
     Active Substance: THIAMINE HYDROCHLORIDE
     Indication: Electrolyte substitution therapy
     Dosage: UNK UNK, QD
     Route: 048
     Dates: start: 202112, end: 202311
  12. MAGNESIUM [Concomitant]
     Active Substance: MAGNESIUM
     Indication: Electrolyte substitution therapy
     Dosage: 1 DF, QD
     Route: 048
     Dates: start: 202112, end: 20231122
  13. ALLOPURINOL [Concomitant]
     Active Substance: ALLOPURINOL
     Indication: Prophylaxis
     Dosage: 200 MG, QD
     Route: 048
  14. ALLOPURINOL [Concomitant]
     Active Substance: ALLOPURINOL
     Indication: Prophylaxis
     Dosage: 300 MG, QD
     Route: 048
     Dates: start: 20220207
  15. ESOMEPRAZOLE [Concomitant]
     Active Substance: ESOMEPRAZOLE
     Indication: Gastrooesophageal reflux disease
     Dosage: 20 MG, QD
     Route: 048
     Dates: start: 20220208, end: 20231122
  16. POTASSIUM CHLORIDE [Concomitant]
     Active Substance: POTASSIUM CHLORIDE
     Indication: Electrolyte substitution therapy
     Dosage: 2 DF, BID
     Route: 048
     Dates: start: 20220208
  17. DAPAGLIFLOZIN [Concomitant]
     Active Substance: DAPAGLIFLOZIN
     Indication: Cardiac failure
     Dosage: 10 MG, QD
     Route: 048
     Dates: start: 20220331, end: 202311
  18. POLYETHYLENE GLYCOLS [Concomitant]
     Active Substance: POLYETHYLENE GLYCOLS
     Indication: Laxative supportive care
     Dosage: UNK UNK, QD
     Route: 048
     Dates: start: 20220929
  19. POLYETHYLENE GLYCOLS [Concomitant]
     Active Substance: POLYETHYLENE GLYCOLS
     Indication: Laxative supportive care
     Dosage: UNK, BID
     Route: 048
  20. LACTULOSE [Concomitant]
     Active Substance: LACTULOSE
     Indication: Laxative supportive care
     Dosage: 11.1 G, TID
     Route: 048
     Dates: start: 20220929
  21. RIFAXIMIN [Concomitant]
     Active Substance: RIFAXIMIN
     Indication: Prophylaxis against diarrhoea
     Dosage: 550 MG, BID
     Route: 048
     Dates: start: 20220929
  22. RIFAXIMIN [Concomitant]
     Active Substance: RIFAXIMIN
     Indication: Hepatobiliary disorder prophylaxis
  23. SPIRONOLACTONE [Concomitant]
     Active Substance: SPIRONOLACTONE
     Indication: Right ventricular failure
     Dosage: 12.5 MG, QD
     Route: 048
     Dates: start: 20221021
  24. AMIODARONE [Concomitant]
     Active Substance: AMIODARONE
     Indication: Atrial fibrillation
     Dosage: 200 MG, QD
     Route: 048
     Dates: start: 20230510
  25. AMIODARONE [Concomitant]
     Active Substance: AMIODARONE
     Indication: Ventricular tachycardia
  26. MULTIVITAMINS WITH MINERALS [CALCIUM PANTOTHENATE;CHOLINE;CYANOCOBALAM [Concomitant]
     Dosage: UNK UNK, QD
     Route: 048
  27. ACETAMINOPHEN\CODEINE PHOSPHATE [Concomitant]
     Active Substance: ACETAMINOPHEN\CODEINE PHOSPHATE
  28. COVID-19 VACCINE [Concomitant]
     Indication: COVID-19
     Dosage: UNK
     Dates: start: 20210422
  29. COVID-19 VACCINE [Concomitant]
     Indication: COVID-19
     Dosage: UNK
     Dates: start: 20220513
  30. ACORAMIDIS [Concomitant]
     Active Substance: ACORAMIDIS
     Dosage: UNK
     Dates: start: 20220518, end: 20231030
  31. CLARITHROMYCIN [Concomitant]
     Active Substance: CLARITHROMYCIN
     Dosage: 500 MG, BID

REACTIONS (15)
  - Upper gastrointestinal haemorrhage [Recovered/Resolved]
  - Malignant melanoma stage III [Recovered/Resolved with Sequelae]
  - Hepatic cirrhosis [Not Recovered/Not Resolved]
  - Hepatic vein dilatation [Unknown]
  - Iron deficiency anaemia [Not Recovered/Not Resolved]
  - Melaena [Unknown]
  - Abdominal distension [Unknown]
  - Fall [Unknown]
  - Nasal injury [Unknown]
  - Skin laceration [Unknown]
  - Injury [Unknown]
  - Portal hypertension [Not Recovered/Not Resolved]
  - Pyrexia [Unknown]
  - COVID-19 [Recovered/Resolved]
  - Pain [Unknown]

NARRATIVE: CASE EVENT DATE: 20220527
